FAERS Safety Report 7210666-9 (Version None)
Quarter: 2010Q4

REPORT INFORMATION
  Report Type: 
  Country: None (occurrence: None)
  Receive Date: 20101227
  Receipt Date: 20101209
  Transmission Date: 20110411
  Serious: Yes (Other)
  Sender: FDA-Public Use
  Company Number: 2010-3590

PATIENT
  Age: 50 Year
  Sex: Female
  Weight: 66 kg

DRUGS (6)
  1. DYSPORT [Suspect]
     Indication: OFF LABEL USE
     Dosage: 148 UNITS (148 UNITS, SINGLE CYCLE), PARENTERAL
     Route: 051
     Dates: start: 20101015, end: 20101015
  2. DYSPORT [Suspect]
     Indication: SKIN COSMETIC PROCEDURE
     Dosage: 148 UNITS (148 UNITS, SINGLE CYCLE), PARENTERAL
     Route: 051
     Dates: start: 20101015, end: 20101015
  3. DYSPORT [Suspect]
     Indication: SKIN WRINKLING
     Dosage: 148 UNITS (148 UNITS, SINGLE CYCLE), PARENTERAL
     Route: 051
     Dates: start: 20101015, end: 20101015
  4. AVAGE (TAZAROTENE) [Concomitant]
  5. MULTIVITAMIN (MULTIVITAMIN /00831701/) [Concomitant]
  6. ALCOHOL PREP (ETHANOL) [Concomitant]

REACTIONS (3)
  - INJECTION SITE ERYTHEMA [None]
  - INJECTION SITE PRURITUS [None]
  - INJECTION SITE RASH [None]
